FAERS Safety Report 24186370 (Version 1)
Quarter: 2024Q3

REPORT INFORMATION
  Report Type: Spontaneous
  Country: US (occurrence: US)
  Receive Date: 20240808
  Receipt Date: 20240808
  Transmission Date: 20241017
  Serious: No
  Sender: BEIGENE
  Company Number: US-BEIGENE-BGN-2024-011360

PATIENT

DRUGS (2)
  1. BRUKINSA [Suspect]
     Active Substance: ZANUBRUTINIB
     Indication: Extranodal marginal zone B-cell lymphoma (MALT type)
     Dosage: 160 MILLIGRAM, BID
     Dates: start: 202406
  2. BRUKINSA [Suspect]
     Active Substance: ZANUBRUTINIB
     Dosage: 160 MILLIGRAM, BID
     Dates: start: 202406

REACTIONS (4)
  - Drainage [Unknown]
  - Catheter site infection [Unknown]
  - Catheter site inflammation [Unknown]
  - Product dose omission issue [Unknown]
